FAERS Safety Report 7978284-2 (Version None)
Quarter: 2011Q4

REPORT INFORMATION
  Report Type: 
  Country: None (occurrence: None)
  Receive Date: 20111214
  Receipt Date: 20111212
  Transmission Date: 20120403
  Serious: Yes (Other)
  Sender: FDA-Public Use
  Company Number: US-PFIZER INC-2011234289

PATIENT
  Sex: Female
  Weight: 113 kg

DRUGS (5)
  1. MELOXICAM [Concomitant]
     Dosage: 15 MG, 1X/DAY
  2. ORPHENADRINE [Concomitant]
     Indication: MUSCLE RELAXANT THERAPY
     Dosage: 100 MG
  3. WELLBUTRIN [Concomitant]
     Dosage: 300 MG, 1X/DAY
  4. TRAMADOL [Concomitant]
     Dosage: 50 MG
  5. LYRICA [Suspect]
     Indication: FIBROMYALGIA
     Dosage: 50 MG, 3X/DAY
     Route: 048
     Dates: start: 20100701, end: 20110930

REACTIONS (2)
  - DYSPNOEA [None]
  - WITHDRAWAL SYNDROME [None]
